FAERS Safety Report 6956844-5 (Version None)
Quarter: 2010Q3

REPORT INFORMATION
  Report Type: 
  Country: None (occurrence: None)
  Receive Date: 20100830
  Receipt Date: 20100826
  Transmission Date: 20110219
  Serious: Yes (Hospitalization)
  Sender: FDA-Public Use
  Company Number: US-GILEAD-2010-0031383

PATIENT
  Age: 60 Year
  Sex: Female
  Weight: 83.99 kg

DRUGS (13)
  1. LETAIRIS [Suspect]
     Route: 048
     Dates: start: 20100809
  2. COREG [Concomitant]
     Indication: PULMONARY ARTERIAL HYPERTENSION
  3. LASIX [Concomitant]
  4. VASOTEC [Concomitant]
  5. ADVAIR DISKUS 100/50 [Concomitant]
  6. JANUVIA [Concomitant]
  7. TRANXENE [Concomitant]
  8. NEXIUM [Concomitant]
  9. KLOR-CON [Concomitant]
  10. VYTORIN [Concomitant]
  11. MULTI-VITAMINS [Concomitant]
  12. FISH OIL [Concomitant]
  13. GARLIC [Concomitant]

REACTIONS (2)
  - CHEST PAIN [None]
  - PNEUMONIA [None]
